FAERS Safety Report 8035742-2 (Version None)
Quarter: 2011Q4

REPORT INFORMATION
  Report Type: 
  Country: None (occurrence: None)
  Receive Date: 20111227
  Receipt Date: 20111215
  Transmission Date: 20120403
  Serious: Yes (Life-Threatening, Hospitalization, Other)
  Sender: FDA-Public Use
  Company Number: 2011SP046144

PATIENT
  Age: 37 Year
  Sex: Male
  Weight: 93 kg

DRUGS (3)
  1. BACLOFEN [Suspect]
     Indication: MULTIPLE SCLEROSIS
     Dosage: 1850;2500 MG PO
     Route: 048
     Dates: end: 20090101
  2. ESCITALOPRAM [Suspect]
     Indication: PRODUCT USED FOR UNKNOWN INDICATION
     Dosage: 160 MG
  3. MIRTAZAPINE [Suspect]
     Indication: PRODUCT USED FOR UNKNOWN INDICATION
     Dosage: 230 MG

REACTIONS (6)
  - SINUS BRADYCARDIA [None]
  - RESPIRATORY ACIDOSIS [None]
  - MULTIPLE DRUG OVERDOSE [None]
  - COMA SCALE ABNORMAL [None]
  - RESPIRATORY RATE DECREASED [None]
  - CONVULSION [None]
